FAERS Safety Report 15280949 (Version 2)
Quarter: 2018Q3

REPORT INFORMATION
  Report Type: Spontaneous
  Country: FR (occurrence: FR)
  Receive Date: 20180815
  Receipt Date: 20180905
  Transmission Date: 20181010
  Serious: Yes (Hospitalization, Other)
  Sender: FDA-Public Use
  Company Number: FR-JAZZ-2018-FR-012172

PATIENT

DRUGS (7)
  1. ERWINASE [Suspect]
     Active Substance: ASPARAGINASE ERWINIA CHRYSANTHEMI
     Indication: NON-HODGKIN^S LYMPHOMA
     Dosage: 10000 U
     Route: 042
     Dates: start: 20180408, end: 20180810
  2. ARACYTINE [Suspect]
     Active Substance: CYTARABINE
     Dosage: 2000MG/M? TOUTES LES 12H J1 J2
     Route: 042
     Dates: start: 20180529
  3. DEXAMETHASONE. [Suspect]
     Active Substance: DEXAMETHASONE
     Indication: PRECURSOR T-LYMPHOBLASTIC LYMPHOMA/LEUKAEMIA
     Dosage: 10MG J1 J2 CYCLE
     Route: 042
     Dates: start: 20180529
  4. ARACYTINE [Suspect]
     Active Substance: CYTARABINE
     Indication: PRECURSOR T-LYMPHOBLASTIC LYMPHOMA/LEUKAEMIA
     Dosage: 40MG J2, CYCLE
     Route: 037
     Dates: start: 20180529
  5. METHOTREXATE MYLAN [Suspect]
     Active Substance: METHOTREXATE SODIUM
     Indication: PRECURSOR T-LYMPHOBLASTIC LYMPHOMA/LEUKAEMIA
     Dosage: 15 MG, CYCLE
     Route: 037
     Dates: start: 20180529
  6. METHYLPREDNISOLONE HEMISUCCINATE [Suspect]
     Active Substance: METHYLPREDNISOLONE HEMISUCCINATE
     Indication: PRECURSOR T-LYMPHOBLASTIC LYMPHOMA/LEUKAEMIA
     Dosage: 40 MG, CYCLE
     Route: 037
     Dates: start: 20180529
  7. ERWINASE [Suspect]
     Active Substance: ASPARAGINASE ERWINIA CHRYSANTHEMI
     Indication: PRECURSOR T-LYMPHOBLASTIC LYMPHOMA/LEUKAEMIA
     Dosage: 20000UI/M? 1 TIME PER CYCLE
     Route: 042
     Dates: start: 20180529

REACTIONS (2)
  - Febrile bone marrow aplasia [Recovered/Resolved]
  - Hypersensitivity [Recovered/Resolved]

NARRATIVE: CASE EVENT DATE: 20180609
